FAERS Safety Report 19402696 (Version 1)
Quarter: 2021Q2

REPORT INFORMATION
  Report Type: Spontaneous
  Country: US (occurrence: US)
  Receive Date: 20210608
  Receipt Date: 20210608
  Transmission Date: 20210717
  Serious: Yes (Life-Threatening, Hospitalization)
  Sender: FDA-Public Use
  Company Number: None

PATIENT
  Age: 46 Year
  Sex: Male

DRUGS (6)
  1. ATORVASTATIN [Concomitant]
     Active Substance: ATORVASTATIN
  2. CENTRUM [Concomitant]
     Active Substance: VITAMINS
  3. LISINOPRIL. [Concomitant]
     Active Substance: LISINOPRIL
  4. ANTI ITCH GEL CLEAR [DIPHENHYDRAMINE HYDROCHLORIDE] [Suspect]
     Active Substance: DIPHENHYDRAMINE HYDROCHLORIDE
     Indication: EXPOSURE TO TOXIC AGENT
     Dates: start: 20170618, end: 20170618
  5. FLUTICASONE PROPIONATE. [Concomitant]
     Active Substance: FLUTICASONE PROPIONATE
  6. METFORMIN [Concomitant]
     Active Substance: METFORMIN HYDROCHLORIDE

REACTIONS (6)
  - Productive cough [None]
  - Tongue disorder [None]
  - Oropharyngeal discomfort [None]
  - Visual impairment [None]
  - Sinus disorder [None]
  - Constipation [None]

NARRATIVE: CASE EVENT DATE: 20170618
